FAERS Safety Report 9284681 (Version 1)
Quarter: 2013Q2

REPORT INFORMATION
  Report Type: Spontaneous
  Country: US (occurrence: US)
  Receive Date: 20130513
  Receipt Date: 20130513
  Transmission Date: 20140414
  Serious: Yes (Other)
  Sender: FDA-Public Use
  Company Number: CHPA2013US007584

PATIENT
  Sex: Male

DRUGS (4)
  1. VOLTAREN GEL [Suspect]
     Indication: BACK PAIN
     Dosage: UNK, UNK
     Route: 061
     Dates: start: 201211, end: 201211
  2. VOLTAREN GEL [Suspect]
     Dosage: UNK, UNK
     Route: 061
     Dates: start: 201304
  3. CHEMOTHERAPEUTICS [Concomitant]
     Indication: COLON CANCER
  4. HYDROCODONE W/APAP [Concomitant]
     Indication: CANCER PAIN

REACTIONS (4)
  - Disease recurrence [Recovering/Resolving]
  - Off label use [Unknown]
  - Therapeutic response unexpected [Unknown]
  - Drug administered at inappropriate site [Unknown]
